FAERS Safety Report 8032150-5 (Version None)
Quarter: 2012Q1

REPORT INFORMATION
  Report Type: 
  Country: None (occurrence: None)
  Receive Date: 20120109
  Receipt Date: 20120103
  Transmission Date: 20120608
  Serious: Yes (Hospitalization, Other)
  Sender: FDA-Public Use
  Company Number: FR-ELI_LILLY_AND_COMPANY-FR201111007728

PATIENT
  Sex: Male
  Weight: 65 kg

DRUGS (11)
  1. TRIATEC                                 /FRA/ [Concomitant]
     Dosage: 5 MG, UNK
     Route: 048
  2. OMACOR [Concomitant]
     Route: 048
  3. BYETTA [Suspect]
     Dosage: 5 UG, BID
     Route: 058
     Dates: start: 20091001, end: 20100525
  4. PLAVIX [Concomitant]
     Dosage: 75 MG, UNK
     Route: 048
  5. KARDEGIC                                /FRA/ [Concomitant]
     Dosage: 160 MG, UNK
     Route: 048
  6. BYETTA [Suspect]
     Dosage: 10 UG, BID
     Route: 058
     Dates: start: 20100523, end: 20101001
  7. EZETIMIBE [Concomitant]
     Dosage: 10 MG, UNK
     Route: 048
  8. CORVASAL [Concomitant]
     Dosage: 2 MG, UNK
     Route: 048
  9. CITALOPRAM HYDROBROMIDE [Concomitant]
     Dosage: 20 MG, UNK
     Route: 048
  10. KERLONE [Concomitant]
     Dosage: 20 MG, UNK
     Route: 048
  11. OMEPRAZOLE [Concomitant]
     Dosage: 20 MG, UNK
     Route: 048

REACTIONS (2)
  - CONDITION AGGRAVATED [None]
  - PANCREATITIS CHRONIC [None]
